FAERS Safety Report 15574268 (Version 2)
Quarter: 2019Q1

REPORT INFORMATION
  Report Type: Spontaneous
  Country: US (occurrence: US)
  Receive Date: 20181101
  Receipt Date: 20190102
  Transmission Date: 20190417
  Serious: No
  Sender: FDA-Public Use
  Company Number: US-BAYER-2018-203461

PATIENT
  Age: 42 Year
  Sex: Female

DRUGS (1)
  1. BETASERON [Suspect]
     Active Substance: INTERFERON BETA-1B
     Indication: MULTIPLE SCLEROSIS
     Dosage: 0.25 MG, UNK

REACTIONS (7)
  - Injection site erythema [None]
  - Injection site pain [None]
  - Cough [None]
  - Headache [None]
  - Neck pain [None]
  - Injection site pruritus [None]
  - Oropharyngeal pain [None]

NARRATIVE: CASE EVENT DATE: 20181024
